FAERS Safety Report 15594869 (Version 1)
Quarter: 2018Q4

REPORT INFORMATION
  Report Type: Other
  Country: US (occurrence: US)
  Receive Date: 20181106
  Receipt Date: 20181106
  Transmission Date: 20190205
  Serious: Yes (Other)
  Sender: FDA-Public Use
  Company Number: US-TEIKOKU PHARMA USA-TPU2018-00686

PATIENT
  Age: 83 Year
  Sex: Male

DRUGS (9)
  1. LIDOCAINE PATCH [Suspect]
     Active Substance: LIDOCAINE
     Indication: PROCEDURAL PAIN
     Route: 065
  2. BUMETANIDE. [Concomitant]
     Active Substance: BUMETANIDE
  3. ACETAMINOPHEN. [Suspect]
     Active Substance: ACETAMINOPHEN
     Indication: PROCEDURAL PAIN
     Route: 065
  4. ISOSORBIDE DINITRATE. [Concomitant]
     Active Substance: ISOSORBIDE DINITRATE
  5. OXYCODONE [Suspect]
     Active Substance: OXYCODONE
     Indication: PROCEDURAL PAIN
  6. QUETIAPINE. [Suspect]
     Active Substance: QUETIAPINE
     Indication: PROCEDURAL PAIN
     Route: 065
  7. METOPROLOL. [Concomitant]
     Active Substance: METOPROLOL
  8. DOXAZOSIN [Concomitant]
     Active Substance: DOXAZOSIN\DOXAZOSIN MESYLATE
  9. AMLODIPINE [Concomitant]
     Active Substance: AMLODIPINE BESYLATE

REACTIONS (6)
  - Delirium [Unknown]
  - Loss of consciousness [Recovered/Resolved]
  - Product administered at inappropriate site [Unknown]
  - Orthostatic hypotension [Unknown]
  - Confusional state [Unknown]
  - Methaemoglobinaemia [Recovered/Resolved]
